FAERS Safety Report 8374044-1 (Version None)
Quarter: 2012Q2

REPORT INFORMATION
  Report Type: 
  Country: None (occurrence: None)
  Receive Date: 20120517
  Receipt Date: 20120517
  Transmission Date: 20120825
  Serious: Yes (Hospitalization)
  Sender: FDA-Public Use
  Company Number: None

PATIENT
  Age: 35 Year
  Sex: Female
  Weight: 68 kg

DRUGS (1)
  1. WARFARIN SODIUM [Suspect]
     Indication: WOUND
     Dosage: ON HOLD FROM NRH UNKNOWN DOSE
     Dates: start: 20120423, end: 20120509

REACTIONS (3)
  - GENERAL PHYSICAL HEALTH DETERIORATION [None]
  - WOUND NECROSIS [None]
  - RESPIRATORY FAILURE [None]
